FAERS Safety Report 12995429 (Version 1)
Quarter: 2016Q4

REPORT INFORMATION
  Report Type: Spontaneous
  Country: DE (occurrence: DE)
  Receive Date: 20161202
  Receipt Date: 20161202
  Transmission Date: 20170207
  Serious: Yes (Death, Hospitalization, Other)
  Sender: FDA-Public Use
  Company Number: DE-APOPHARMA USA, INC.-2016AP015156

PATIENT
  Age: 27 Year
  Sex: Male

DRUGS (2)
  1. ALKERAN [Suspect]
     Active Substance: MELPHALAN
     Indication: STEM CELL TRANSPLANT
     Dosage: 140 MG/M2, UNKNOWN
     Route: 065
  2. FLUDARABINE [Concomitant]
     Active Substance: FLUDARABINE PHOSPHATE
     Indication: STEM CELL TRANSPLANT
     Route: 065

REACTIONS (6)
  - Renal failure [Not Recovered/Not Resolved]
  - Cardiomyopathy [Not Recovered/Not Resolved]
  - Hepatic failure [Fatal]
  - Sepsis [Fatal]
  - Impaired healing [Not Recovered/Not Resolved]
  - Venoocclusive liver disease [Not Recovered/Not Resolved]
